FAERS Safety Report 8834823 (Version 1)
Quarter: 2012Q4

REPORT INFORMATION
  Report Type: Spontaneous
  Country: JP (occurrence: None)
  Receive Date: 20121009
  Receipt Date: 20121009
  Transmission Date: 20130627
  Serious: Yes (Life-Threatening, Other)
  Sender: FDA-Public Use
  Company Number: 2010JP007205

PATIENT
  Age: 5 Year
  Sex: Male
  Weight: 15.4 kg

DRUGS (16)
  1. PROGRAF [Suspect]
     Indication: PROPHYLAXIS AGAINST LIVER TRANSPLANT REJECTION
     Route: 048
     Dates: start: 20090925, end: 20091026
  2. PROGRAF [Suspect]
     Indication: PROPHYLAXIS AGAINST LIVER TRANSPLANT REJECTION
     Route: 048
     Dates: start: 20091030, end: 20091112
  3. PROGRAF [Suspect]
     Indication: PROPHYLAXIS AGAINST LIVER TRANSPLANT REJECTION
     Route: 048
     Dates: start: 20091118
  4. PREDNISOLONE [Suspect]
     Indication: LIVER TRANSPLANT
     Route: 048
     Dates: start: 20090925
  5. CELLCEPT [Suspect]
     Indication: LIVER TRANSPLANT
     Route: 048
     Dates: start: 20090925
  6. METHYLPREDNISOLONE (METHYLPREDNISOLONE) FORMULATION UNKNOWN [Concomitant]
  7. ADSORBIN (ALUMINIUM SILICATE) POWDER [Concomitant]
  8. LASIX (FUROSEMIDE) FINE GRANULE [Concomitant]
  9. NORVASC (AMLODIPINE BESILATE) POWDER [Concomitant]
  10. URSO (URSODEOXYCHOLIC ACID) GRANULE [Concomitant]
  11. SODIUM BICARBONATE (SODIUM BICARBONATE) POWDER [Concomitant]
  12. TAKEPRON (LANSOPRAZOLE) POWDER [Concomitant]
  13. BIOLACTIS (LACTOBACILLUS CASEI) POWDER [Concomitant]
  14. BIOFERMIN (BACILLUS SUBTILIS, LACTOBACILLUS ACIDOPHILUS, STREPTOCOCCUS FAECALIS) POWDER [Concomitant]
  15. RIBALL (ALLOPURINOL) FINE GRANULE [Concomitant]
  16. BLOPRESS (CANDESARTAN CILEXETIL) POWDER [Concomitant]

REACTIONS (13)
  - Drug ineffective [None]
  - Evans syndrome [None]
  - Peritonitis bacterial [None]
  - Device related infection [None]
  - Ascites [None]
  - Klebsiella test positive [None]
  - Renal failure chronic [None]
  - Haemodialysis [None]
  - Renal transplant [None]
  - Anaemia haemolytic autoimmune [None]
  - Thrombocytopenia [None]
  - Graft versus host disease [None]
  - Hypertension [None]
